FAERS Safety Report 8502109-X (Version None)
Quarter: 2012Q3

REPORT INFORMATION
  Report Type: 
  Country: None (occurrence: None)
  Receive Date: 20120711
  Receipt Date: 20120625
  Transmission Date: 20120928
  Serious: No
  Sender: FDA-Public Use
  Company Number: CA-JNJFOC-20120613144

PATIENT
  Sex: Female
  Weight: 70 kg

DRUGS (3)
  1. CALCIUM [Concomitant]
     Route: 065
  2. VITAMIN D [Concomitant]
     Route: 065
  3. REMICADE [Suspect]
     Indication: COLITIS ULCERATIVE
     Route: 042
     Dates: start: 20110308

REACTIONS (2)
  - FEELING ABNORMAL [None]
  - SINUSITIS [None]
